FAERS Safety Report 7128330-3 (Version None)
Quarter: 2010Q4

REPORT INFORMATION
  Report Type: 
  Country: None (occurrence: None)
  Receive Date: 20101130
  Receipt Date: 20101123
  Transmission Date: 20110411
  Serious: Yes (Death)
  Sender: FDA-Public Use
  Company Number: GB-NOVOPROD-317932

PATIENT
  Age: 57 Year
  Sex: Female

DRUGS (2)
  1. ACTRAPID [Suspect]
     Indication: OFF LABEL USE
  2. PROTAPHANE [Suspect]
     Indication: OFF LABEL USE

REACTIONS (3)
  - BLOOD INSULIN [None]
  - COMPLETED SUICIDE [None]
  - INTENTIONAL DRUG MISUSE [None]
